FAERS Safety Report 6066263-4 (Version None)
Quarter: 2009Q1

REPORT INFORMATION
  Report Type: 
  Country: None (occurrence: None)
  Receive Date: 20090205
  Receipt Date: 20090126
  Transmission Date: 20090719
  Serious: Yes (Other)
  Sender: FDA-Public Use
  Company Number: HQWYE352217AUG04

PATIENT
  Sex: Female

DRUGS (3)
  1. PREMARIN [Suspect]
  2. PREMPRO [Suspect]
  3. PREMARIN [Suspect]

REACTIONS (2)
  - CONTRALATERAL BREAST CANCER [None]
  - OVARIAN CANCER METASTATIC [None]
